FAERS Safety Report 5731791-5 (Version None)
Quarter: 2008Q2

REPORT INFORMATION
  Report Type: 
  Country: None (occurrence: None)
  Receive Date: 20080508
  Receipt Date: 20080505
  Transmission Date: 20081010
  Serious: Yes (Hospitalization)
  Sender: FDA-Public Use
  Company Number: US-ROCHE-562408

PATIENT
  Age: 69 Year
  Sex: Female

DRUGS (2)
  1. BONIVA [Suspect]
     Indication: OSTEOPOROSIS
     Route: 065
     Dates: start: 20070522, end: 20080101
  2. BONIVA [Suspect]
     Route: 065
     Dates: start: 20080505

REACTIONS (1)
  - DIVERTICULITIS [None]
